FAERS Safety Report 19732953 (Version 1)
Quarter: 2021Q3

REPORT INFORMATION
  Report Type: Report from Study
  Country: MX (occurrence: MX)
  Receive Date: 20210823
  Receipt Date: 20210823
  Transmission Date: 20211014
  Serious: Yes (Death, Hospitalization, Other)
  Sender: FDA-Public Use
  Company Number: MX-UCBSA-2021035572

PATIENT
  Age: 75 Year
  Sex: Female

DRUGS (2)
  1. ROTIGOTINE [Suspect]
     Active Substance: ROTIGOTINE
     Indication: PARKINSON^S DISEASE
     Dosage: 4 MILLIGRAM, ONCE DAILY (QD)
     Route: 062
     Dates: start: 202103, end: 20210325
  2. ROTIGOTINE [Suspect]
     Active Substance: ROTIGOTINE
     Dosage: 6 MILLIGRAM, ONCE DAILY (QD)
     Route: 062
     Dates: start: 20210326, end: 202106

REACTIONS (5)
  - Pneumonia [Fatal]
  - Hypoxia [Fatal]
  - Septic shock [Fatal]
  - Feeding disorder [Unknown]
  - Diaphragmatic paralysis [Unknown]

NARRATIVE: CASE EVENT DATE: 202103
